FAERS Safety Report 23610719 (Version 2)
Quarter: 2024Q1

REPORT INFORMATION
  Report Type: Report from Study
  Country: US (occurrence: US)
  Receive Date: 20240308
  Receipt Date: 20240311
  Transmission Date: 20240410
  Serious: Yes (Hospitalization)
  Sender: FDA-Public Use
  Company Number: US-Eisai-EC-2024-161193

PATIENT
  Age: 65 Year
  Sex: Female

DRUGS (2)
  1. LENVATINIB [Suspect]
     Active Substance: LENVATINIB
     Indication: Ductal adenocarcinoma of pancreas
     Dosage: DOSE AND FREQUENCY UNKNOWN
     Route: 048
     Dates: start: 20240228, end: 2024
  2. PEMBROLIZUMAB [Suspect]
     Active Substance: PEMBROLIZUMAB
     Indication: Ductal adenocarcinoma of pancreas
     Dosage: DOSE AND FREQUENCY UNKNOWN
     Route: 042
     Dates: start: 20240131

REACTIONS (2)
  - Pneumonia [Unknown]
  - Enterocolitis infectious [Unknown]

NARRATIVE: CASE EVENT DATE: 20240228
